FAERS Safety Report 19777355 (Version 2)
Quarter: 2021Q3

REPORT INFORMATION
  Report Type: Spontaneous
  Country: JP (occurrence: JP)
  Receive Date: 20210902
  Receipt Date: 20210906
  Transmission Date: 20211014
  Serious: Yes (Hospitalization, Other)
  Sender: FDA-Public Use
  Company Number: JP-BRISTOL-MYERS SQUIBB COMPANY-BMS-2021-085058

PATIENT
  Age: 67 Year
  Sex: Male

DRUGS (1)
  1. KENACORT?A [Suspect]
     Active Substance: TRIAMCINOLONE ACETONIDE
     Indication: DIABETIC RETINAL OEDEMA
     Dosage: UNK

REACTIONS (2)
  - Macular detachment [Recovered/Resolved]
  - Intentional product use issue [Unknown]
